FAERS Safety Report 7112275-9 (Version None)
Quarter: 2010Q4

REPORT INFORMATION
  Report Type: 
  Country: None (occurrence: None)
  Receive Date: 20101119
  Receipt Date: 20100521
  Transmission Date: 20110411
  Serious: No
  Sender: FDA-Public Use
  Company Number: A0860848A

PATIENT
  Sex: Male

DRUGS (2)
  1. AVODART [Suspect]
     Route: 048
  2. NO CONCURRENT MEDICATION [Concomitant]

REACTIONS (2)
  - BARBITURATES POSITIVE [None]
  - DRUG SCREEN FALSE POSITIVE [None]
